FAERS Safety Report 4697327-5 (Version None)
Quarter: 2005Q2

REPORT INFORMATION
  Report Type: 
  Country: None (occurrence: None)
  Receive Date: 20050620
  Receipt Date: 20050609
  Transmission Date: 20051028
  Serious: Yes (Other)
  Sender: FDA-Public Use
  Company Number: 2005086815

PATIENT
  Age: 51 Year
  Sex: Male
  Weight: 151.955 kg

DRUGS (2)
  1. LIPITOR [Suspect]
     Indication: BLOOD CHOLESTEROL INCREASED
     Dosage: 30 MG (30 MG , 1 IN 1 D), ORAL
     Route: 048
     Dates: end: 20050601
  2. NASCORT (BUDESONIDE) [Concomitant]

REACTIONS (9)
  - ABDOMINAL RIGIDITY [None]
  - ATTENTION DEFICIT/HYPERACTIVITY DISORDER [None]
  - CARPAL TUNNEL DECOMPRESSION [None]
  - CARPAL TUNNEL SYNDROME [None]
  - CONDITION AGGRAVATED [None]
  - DIARRHOEA [None]
  - HYPERTENSION [None]
  - PAIN IN EXTREMITY [None]
  - PHARMACEUTICAL PRODUCT COMPLAINT [None]
